FAERS Safety Report 6655280-9 (Version None)
Quarter: 2010Q1

REPORT INFORMATION
  Report Type: 
  Country: None (occurrence: None)
  Receive Date: 20100329
  Receipt Date: 20100324
  Transmission Date: 20100710
  Serious: Yes (Other)
  Sender: FDA-Public Use
  Company Number: US-BAYER-201013440BCC

PATIENT
  Age: 70 Year
  Sex: Female
  Weight: 64 kg

DRUGS (3)
  1. ALEVE (CAPLET) [Suspect]
     Indication: BACK PAIN
     Dosage: TOTAL DAILY DOSE: 880 MG  UNIT DOSE: 220 MG
     Dates: start: 20030101, end: 20040101
  2. METFORMIN HCL [Concomitant]
     Dosage: TOTAL DAILY DOSE: 500 MG  UNIT DOSE: 500 MG
  3. GLYBURIDE [Concomitant]

REACTIONS (1)
  - PEPTIC ULCER [None]
